FAERS Safety Report 6721638-2 (Version None)
Quarter: 2010Q2

REPORT INFORMATION
  Report Type: 
  Country: None (occurrence: None)
  Receive Date: 20100512
  Receipt Date: 20100430
  Transmission Date: 20101027
  Serious: Yes (Life-Threatening, Hospitalization, Other)
  Sender: FDA-Public Use
  Company Number: PHHY2010BR27058

PATIENT
  Sex: Female

DRUGS (1)
  1. FORASEQ [Suspect]
     Dosage: TWICE A DAY WHEN SHE WAS WELL OR THRICE A DAY WHEN SHE EXPERIENCED ASTHMA EPISODES

REACTIONS (10)
  - APPLICATION SITE DISCOLOURATION [None]
  - ASTHMA [None]
  - DEVICE MALFUNCTION [None]
  - DIZZINESS [None]
  - DYSPNOEA [None]
  - FEELING ABNORMAL [None]
  - MALAISE [None]
  - SPEECH DISORDER [None]
  - TREATMENT NONCOMPLIANCE [None]
  - TREMOR [None]
